FAERS Safety Report 7166192-9 (Version None)
Quarter: 2010Q4

REPORT INFORMATION
  Report Type: 
  Country: None (occurrence: None)
  Receive Date: 20101216
  Receipt Date: 20101215
  Transmission Date: 20110411
  Serious: Yes (Death, Hospitalization)
  Sender: FDA-Public Use
  Company Number: IL-MPIJNJ-2010-06207

PATIENT

DRUGS (4)
  1. VELCADE [Suspect]
     Indication: CARDIAC AMYLOIDOSIS
     Dosage: UNK
     Route: 065
     Dates: end: 20101206
  2. MELPHALAN [Concomitant]
     Indication: CARDIAC AMYLOIDOSIS
  3. FUSID                              /00032601/ [Concomitant]
  4. POTASSIUM CHLORIDE [Concomitant]

REACTIONS (2)
  - CARDIAC AMYLOIDOSIS [None]
  - MYOCARDIAL INFARCTION [None]
